FAERS Safety Report 23219952 (Version 2)
Quarter: 2024Q2

REPORT INFORMATION
  Report Type: Report from Study
  Country: US (occurrence: US)
  Receive Date: 20231122
  Receipt Date: 20240413
  Transmission Date: 20240716
  Serious: No
  Sender: FDA-Public Use
  Company Number: US-AstraZeneca-CH-00512918A

PATIENT
  Sex: Male

DRUGS (1)
  1. ULTOMIRIS [Suspect]
     Active Substance: RAVULIZUMAB-CWVZ
     Indication: Myasthenia gravis
     Dosage: UNK
     Route: 041
     Dates: start: 20230621

REACTIONS (5)
  - Eyelid ptosis [Recovered/Resolved]
  - Dysphagia [Unknown]
  - Fatigue [Recovered/Resolved]
  - Diplopia [Recovered/Resolved]
  - Muscle disorder [Unknown]
